FAERS Safety Report 9275074 (Version 1)
Quarter: 2013Q2

REPORT INFORMATION
  Report Type: Spontaneous
  Country: US (occurrence: US)
  Receive Date: 20130507
  Receipt Date: 20130507
  Transmission Date: 20140414
  Serious: Yes (Other)
  Sender: FDA-Public Use
  Company Number: US-PFIZER INC-2013141038

PATIENT
  Age: 49 Year
  Sex: Female
  Weight: 83.9 kg

DRUGS (6)
  1. LYRICA [Suspect]
     Indication: NEUROPATHY PERIPHERAL
     Dosage: UNK
     Dates: end: 201212
  2. NEURONTIN [Suspect]
     Indication: NEUROPATHY PERIPHERAL
     Dosage: 300MG TWO TIMES A DAY (MORNING AND AFTER-NOON) AND 600MG (AT NIGHT).
     Dates: start: 201301
  3. CYTOXAN [Suspect]
     Indication: RENAL FAILURE
     Dosage: UNK
  4. CYTOXAN [Suspect]
     Indication: CHEMOTHERAPY
  5. PREDNISONE [Concomitant]
     Indication: SYSTEMIC LUPUS ERYTHEMATOSUS
     Dosage: 2 MG, 1X/DAY
  6. COUMADIN [Concomitant]
     Indication: CARDIAC VALVE DISEASE
     Dosage: UNK

REACTIONS (5)
  - Renal impairment [Unknown]
  - Foot fracture [Unknown]
  - Foot deformity [Unknown]
  - Fall [Unknown]
  - Drug ineffective [Unknown]
